FAERS Safety Report 5041440-X (Version None)
Quarter: 2006Q2

REPORT INFORMATION
  Report Type: 
  Country: None (occurrence: None)
  Receive Date: 20060626
  Receipt Date: 20060616
  Transmission Date: 20061013
  Serious: Yes (Other)
  Sender: FDA-Public Use
  Company Number: CHPA2006US05946

PATIENT
  Age: 20 Year
  Sex: Male
  Weight: 65.8 kg

DRUGS (3)
  1. NICOTINE [Suspect]
     Indication: SMOKING CESSATION THERAPY
     Dosage: 21 MG, QD, TRANSDERMAL
     Route: 062
     Dates: start: 20060614, end: 20060614
  2. VICODIN [Suspect]
     Indication: TOOTH EXTRACTION
     Dosage: 500 MG, BID, ORAL
     Route: 048
     Dates: start: 20060614, end: 20060614
  3. PENICILLIN [Concomitant]

REACTIONS (5)
  - CONVULSION [None]
  - INCOHERENT [None]
  - LOSS OF CONSCIOUSNESS [None]
  - RESPIRATORY ARREST [None]
  - TREATMENT NONCOMPLIANCE [None]
